FAERS Safety Report 9652158 (Version 2)
Quarter: 2014Q1

REPORT INFORMATION
  Report Type: Spontaneous
  Country: FR (occurrence: FR)
  Receive Date: 20131029
  Receipt Date: 20140211
  Transmission Date: 20141002
  Serious: Yes (Other)
  Sender: FDA-Public Use
  Company Number: FR-ROCHE-1295456

PATIENT
  Age: 82 Year
  Sex: Male

DRUGS (14)
  1. MABTHERA [Suspect]
     Indication: B-CELL LYMPHOMA
     Route: 042
     Dates: start: 20130522
  2. BACTRIM FORTE [Suspect]
     Indication: INFECTION PROPHYLAXIS
     Route: 048
     Dates: start: 20130522
  3. ARACYTINE [Suspect]
     Indication: B-CELL LYMPHOMA
     Dosage: ON DAY 1 AND  2
     Route: 042
     Dates: start: 20130522
  4. CORTANCYL [Suspect]
     Indication: B-CELL LYMPHOMA
     Route: 042
     Dates: start: 20130522
  5. CARBOPLATIN [Suspect]
     Indication: B-CELL LYMPHOMA
     Dosage: ON DAY 2
     Route: 042
     Dates: start: 20130522
  6. ZELITREX [Suspect]
     Indication: INFECTION PROPHYLAXIS
     Route: 048
     Dates: start: 20130522
  7. DOMPERIDONE [Suspect]
     Indication: PRODUCT USED FOR UNKNOWN INDICATION
     Route: 048
     Dates: start: 20130522
  8. ACEBUTOLOL [Concomitant]
     Dosage: DAILY
     Route: 065
  9. AMLOR [Concomitant]
     Dosage: DAILY
     Route: 065
  10. HYTACAND [Concomitant]
     Dosage: DAILY
     Route: 065
  11. CRESTOR [Concomitant]
     Dosage: DAILY
     Route: 065
  12. OMEPRAZOLE [Concomitant]
     Dosage: DAILY
     Route: 065
  13. KARDEGIC [Concomitant]
     Dosage: DAILY
     Route: 065
  14. PERMIXON [Concomitant]
     Dosage: 2 TABLETS DAILY
     Route: 065

REACTIONS (1)
  - Parkinsonism [Not Recovered/Not Resolved]
